FAERS Safety Report 9280592 (Version 1)
Quarter: 2013Q2

REPORT INFORMATION
  Report Type: Spontaneous
  Country: MX (occurrence: MX)
  Receive Date: 20130509
  Receipt Date: 20130509
  Transmission Date: 20140414
  Serious: Yes (Life-Threatening)
  Sender: FDA-Public Use
  Company Number: MX-ROCHE-1222786

PATIENT
  Age: 63 Year
  Sex: Female

DRUGS (4)
  1. ACTEMRA [Suspect]
     Indication: RHEUMATOID ARTHRITIS
     Route: 042
     Dates: start: 20120811
  2. METHOTREXATE INJECTION [Concomitant]
  3. ARTRENE (MEXICO) [Concomitant]
     Route: 065
  4. SULFASALAZINE ENTERIC COATED [Concomitant]
     Dosage: 3 TABLETS PER DAY
     Route: 065

REACTIONS (2)
  - Respiratory failure [Not Recovered/Not Resolved]
  - Transaminases increased [Recovered/Resolved]
